FAERS Safety Report 23028198 (Version 2)
Quarter: 2023Q4

REPORT INFORMATION
  Report Type: Spontaneous
  Country: US (occurrence: US)
  Receive Date: 20231004
  Receipt Date: 20231030
  Transmission Date: 20240109
  Serious: Yes (Hospitalization, Other)
  Sender: FDA-Public Use
  Company Number: US-LUPIN HEALTHCARE (UK) LIMITED-2023-08304

PATIENT
  Age: 58 Year
  Sex: Female

DRUGS (14)
  1. GABAPENTIN [Interacting]
     Active Substance: GABAPENTIN
     Indication: Pain
     Dosage: 100 MILLIGRAM, TID
     Route: 048
  2. GABAPENTIN [Interacting]
     Active Substance: GABAPENTIN
     Indication: Pain
     Dosage: UNK (RESTARTED)
     Route: 048
  3. GABAPENTIN [Interacting]
     Active Substance: GABAPENTIN
     Indication: Neuralgia
  4. SERTRALINE [Interacting]
     Active Substance: SERTRALINE HYDROCHLORIDE
     Indication: Anxiety
     Dosage: UNK
     Route: 065
  5. SERTRALINE [Interacting]
     Active Substance: SERTRALINE HYDROCHLORIDE
     Indication: Depression
  6. FLUOXETINE [Interacting]
     Active Substance: FLUOXETINE HYDROCHLORIDE
     Indication: Anxiety
     Dosage: UNK
     Route: 065
  7. FLUOXETINE [Interacting]
     Active Substance: FLUOXETINE HYDROCHLORIDE
     Indication: Depression
  8. PREGABALIN [Interacting]
     Active Substance: PREGABALIN
     Indication: Pain
     Dosage: UNK
     Route: 065
  9. HYDROCODONE [Interacting]
     Active Substance: HYDROCODONE
     Indication: Pain
     Dosage: UNK UNK, QID (10-325 MILLIGRAM UP TO FOUR TIMES A DAY)
     Route: 048
  10. HYDROCODONE [Interacting]
     Active Substance: HYDROCODONE
     Dosage: UNK (ADDITIONAL DOSES OF 10/325 MG, RESTARTED)
     Route: 048
  11. CYCLOBENZAPRINE [Interacting]
     Active Substance: CYCLOBENZAPRINE
     Indication: Pain
     Dosage: 10 MILLIGRAM, QD (DAILY AS NEEDED)
     Route: 048
  12. CYCLOBENZAPRINE [Interacting]
     Active Substance: CYCLOBENZAPRINE
     Indication: Muscle relaxant therapy
     Dosage: 10 MG (RESTARTED)
     Route: 048
  13. TIZANIDINE [Concomitant]
     Active Substance: TIZANIDINE
     Indication: Pain
     Dosage: 2 MILLIGRAM, BID (TWICE A DAY)
     Route: 065
  14. TIZANIDINE [Concomitant]
     Active Substance: TIZANIDINE
     Indication: Pain

REACTIONS (5)
  - Serotonin syndrome [Recovering/Resolving]
  - Drug interaction [Unknown]
  - Tachycardia [Unknown]
  - Hypertension [Unknown]
  - Muscle rigidity [Unknown]
